APPROVED DRUG PRODUCT: RANEXA
Active Ingredient: RANOLAZINE
Strength: 500MG **Federal Register determination that product was not discontinued or withdrawn for safety or effectiveness reasons**
Dosage Form/Route: TABLET, EXTENDED RELEASE;ORAL
Application: N021526 | Product #002
Applicant: MENARINI INTERNATIONAL OPERATIONS LUXEMBOURG SA
Approved: Jan 27, 2006 | RLD: Yes | RS: No | Type: DISCN